FAERS Safety Report 10870933 (Version 2)
Quarter: 2015Q2

REPORT INFORMATION
  Report Type: Spontaneous
  Country: US (occurrence: US)
  Receive Date: 20150226
  Receipt Date: 20150514
  Transmission Date: 20150821
  Serious: Yes (Death)
  Sender: FDA-Public Use
  Company Number: US-PFIZER INC-2015068964

PATIENT
  Age: 66 Year
  Sex: Male

DRUGS (3)
  1. OXYCODONE [Concomitant]
     Active Substance: OXYCODONE
     Dosage: UNK
  2. LIDODERM [Concomitant]
     Active Substance: LIDOCAINE
  3. LYRICA [Suspect]
     Active Substance: PREGABALIN
     Dosage: UNK
     Dates: start: 201501, end: 201501

REACTIONS (3)
  - Agitation [Unknown]
  - Completed suicide [Fatal]
  - Condition aggravated [Unknown]

NARRATIVE: CASE EVENT DATE: 201501
